FAERS Safety Report 23372163 (Version 2)
Quarter: 2024Q1

REPORT INFORMATION
  Report Type: Spontaneous
  Country: US (occurrence: US)
  Receive Date: 20240105
  Receipt Date: 20240118
  Transmission Date: 20240410
  Serious: Yes (Other)
  Sender: FDA-Public Use
  Company Number: US-PFIZER INC-202300456336

PATIENT
  Age: 51 Year
  Sex: Female
  Weight: 152.41 kg

DRUGS (3)
  1. SOMAVERT [Suspect]
     Active Substance: PEGVISOMANT
     Indication: Albright^s disease
     Dosage: 20MG PER VIAL AND USES 1 VIAL PER DAY
  2. SOMAVERT [Suspect]
     Active Substance: PEGVISOMANT
     Indication: Fibrous dysplasia of bone
  3. SOMAVERT [Suspect]
     Active Substance: PEGVISOMANT
     Indication: Acromegaly

REACTIONS (2)
  - Pneumonia [Unknown]
  - Pain [Unknown]

NARRATIVE: CASE EVENT DATE: 20231201
